FAERS Safety Report 9269481 (Version 1)
Quarter: 2013Q2

REPORT INFORMATION
  Report Type: Report from Study
  Country: ES (occurrence: ES)
  Receive Date: 20130503
  Receipt Date: 20130503
  Transmission Date: 20140414
  Serious: Yes (Other)
  Sender: FDA-Public Use
  Company Number: ES-009507513-2012SP017982

PATIENT
  Age: 54 Year
  Sex: Male
  Weight: 77.5 kg

DRUGS (2)
  1. PEGINTRON [Suspect]
     Indication: CHRONIC HEPATITIS
     Dosage: 120 MICROGRAM, UNKNOWN
     Route: 058
     Dates: start: 201106
  2. REBETOL [Interacting]
     Indication: HEPATITIS ALCOHOLIC
     Dosage: 500 MG, BID
     Route: 048
     Dates: start: 201106

REACTIONS (1)
  - Acute psychosis [Not Recovered/Not Resolved]
